FAERS Safety Report 25876225 (Version 1)
Quarter: 2025Q4

REPORT INFORMATION
  Report Type: Report from Study
  Country: AR (occurrence: AR)
  Receive Date: 20251003
  Receipt Date: 20251003
  Transmission Date: 20260117
  Serious: Yes (Hospitalization, Other)
  Sender: JOHNSON AND JOHNSON
  Company Number: AR-JNJFOC-20250739178

PATIENT
  Age: 55 Year
  Sex: Female
  Weight: 55 kg

DRUGS (1)
  1. SIMPONI [Suspect]
     Active Substance: GOLIMUMAB
     Indication: Rheumatoid arthritis
     Route: 041
     Dates: start: 20210917

REACTIONS (5)
  - Gallbladder operation [Unknown]
  - Rheumatoid arthritis [Unknown]
  - Infection [Unknown]
  - Pruritus [Unknown]
  - Tinnitus [Unknown]

NARRATIVE: CASE EVENT DATE: 20250101
